FAERS Safety Report 16913103 (Version 1)
Quarter: 2019Q4

REPORT INFORMATION
  Report Type: Other
  Country: DE (occurrence: DE)
  Receive Date: 20191014
  Receipt Date: 20191014
  Transmission Date: 20200122
  Serious: Yes (Congenital Anomaly, Other)
  Sender: FDA-Public Use
  Company Number: DE-MACLEODS PHARMACEUTICALS US LTD-MAC2019023242

PATIENT

DRUGS (1)
  1. ARIPIPRAZOLE  10 MG [Suspect]
     Active Substance: ARIPIPRAZOLE
     Indication: PRODUCT USED FOR UNKNOWN INDICATION
     Dosage: 10 MILLIGRAM, QD, 0. - 39.4. GESTATIONAL WEEK
     Route: 064
     Dates: start: 20180830, end: 20190603

REACTIONS (3)
  - Foetal exposure during pregnancy [Unknown]
  - Hypospadias [Unknown]
  - Cryptorchism [Recovered/Resolved]

NARRATIVE: CASE EVENT DATE: 20190603
